FAERS Safety Report 9329585 (Version 2)
Quarter: 2013Q2

REPORT INFORMATION
  Report Type: Spontaneous
  Country: US (occurrence: US)
  Receive Date: 20130604
  Receipt Date: 20130617
  Transmission Date: 20140414
  Serious: No
  Sender: FDA-Public Use
  Company Number: US-ASTRAZENECA-2013SE37789

PATIENT
  Age: 27 Year
  Sex: Male
  Weight: 106.6 kg

DRUGS (3)
  1. TOPROL-XL [Suspect]
     Indication: HYPERTENSION
     Dosage: TWO 100 MG TABLETS IN THE AM AND TWO 100 MG TABLETS IN THE PM
     Route: 048
     Dates: start: 2008
  2. TOPROL-XL [Suspect]
     Indication: HEART RATE INCREASED
     Dosage: TWO 100 MG TABLETS IN THE AM AND TWO 100 MG TABLETS IN THE PM
     Route: 048
     Dates: start: 2008
  3. TOPROL-XL [Suspect]
     Indication: ARRHYTHMIA
     Dosage: TWO 100 MG TABLETS IN THE AM AND TWO 100 MG TABLETS IN THE PM
     Route: 048
     Dates: start: 2008

REACTIONS (2)
  - Heart rate increased [Recovered/Resolved]
  - Drug effect decreased [Recovered/Resolved]
